FAERS Safety Report 8704714 (Version 4)
Quarter: 2012Q4

REPORT INFORMATION
  Report Type: 
  Country: US (occurrence: US)
  Receive Date: 20120803
  Receipt Date: 20120910
  Transmission Date: 20130627
  Serious: Yes (Death, Hospitalization, Other)
  Sender: FDA-Public Use
  Company Number: US-ACTELION-A-NJ2012-69335

PATIENT
  Age: 84 Year
  Sex: Male

DRUGS (2)
  1. TRACLEER [Suspect]
     Indication: PULMONARY ARTERIAL HYPERTENSION
     Dosage: 125 mg, bid
     Route: 048
     Dates: end: 20120826
  2. TRACLEER [Suspect]
     Dosage: 62.5 mg, bid
     Route: 048
     Dates: start: 20101215

REACTIONS (7)
  - Death [Fatal]
  - Diabetic neuropathy [Recovering/Resolving]
  - Sensory loss [Recovering/Resolving]
  - Concomitant disease aggravated [Recovering/Resolving]
  - Myocardial infarction [Unknown]
  - Fall [Unknown]
  - Dyspnoea [Unknown]
